FAERS Safety Report 16777155 (Version 3)
Quarter: 2019Q4

REPORT INFORMATION
  Report Type: Spontaneous
  Country: NL (occurrence: NL)
  Receive Date: 20190905
  Receipt Date: 20191212
  Transmission Date: 20200122
  Serious: Yes (Disabling)
  Sender: FDA-Public Use
  Company Number: NL-AMERICAN REGENT INC-20191360

PATIENT
  Age: 38 Year
  Sex: Female

DRUGS (11)
  1. URSOCHOL [Concomitant]
     Active Substance: URSODIOL
     Indication: PRODUCT USED FOR UNKNOWN INDICATION
     Dosage: TWICE DAILY, SOMETIMES ONCE DAILY (450 MG)
     Route: 065
  2. METAMUCIL [Concomitant]
     Active Substance: PLANTAGO SEED
     Indication: PRODUCT USED FOR UNKNOWN INDICATION
     Dosage: 1 SACHET (1 DOSAGE FORMS,1 IN 1 D)
     Route: 065
  3. FERINJECT [Suspect]
     Active Substance: FERRIC CARBOXYMALTOSE
     Indication: HEREDITARY HAEMORRHAGIC TELANGIECTASIA
     Dosage: 1000 UNSPECIFIED UNIT (1 DOSAGE FORMS)
     Route: 042
     Dates: start: 20111211, end: 20190601
  4. ETHINYLESTRADIOL/LEVONORGESTREL [Concomitant]
     Active Substance: ETHINYL ESTRADIOL\LEVONORGESTREL
     Indication: PRODUCT USED FOR UNKNOWN INDICATION
     Dosage: CONTINUOUS USE WITH TWICE-YEARLY INTERVAL DURING WHICH SOME MENSTRUAL BLOOD LOSS (1 DOSAGE FORMS, 1
     Route: 065
  5. PARACETAMOL [Concomitant]
     Active Substance: ACETAMINOPHEN
     Indication: PRODUCT USED FOR UNKNOWN INDICATION
     Dosage: 2000 MG (1000 MG, AS REQUIRED)
     Route: 065
  6. CALCIUM CARB/COLECALC [Concomitant]
     Indication: PRODUCT USED FOR UNKNOWN INDICATION
     Dosage: CALCIUM CARBONATE 2.5 G/COLECALCIFEROL 880 IU (1000 MG CA) (1 IN 1 D)
     Route: 065
  7. CODEINE PHOSPHATE [Concomitant]
     Active Substance: CODEINE PHOSPHATE
     Indication: PRODUCT USED FOR UNKNOWN INDICATION
     Dosage: 2 TABLETS (AS NEEDED) (20 MG, AS REQUIRED)
     Route: 065
  8. OMEPRAZOLE. [Concomitant]
     Active Substance: OMEPRAZOLE
     Indication: PRODUCT USED FOR UNKNOWN INDICATION
     Dosage: 40 MG (40 MG, 1 IN 1 D)
     Route: 065
  9. SUCRALFATE. [Concomitant]
     Active Substance: SUCRALFATE
     Indication: PRODUCT USED FOR UNKNOWN INDICATION
     Dosage: 4 GM (1 GM, AS NEEDED)
     Route: 065
  10. VITAMIN D [Concomitant]
     Active Substance: VITAMIN D NOS
     Indication: PRODUCT USED FOR UNKNOWN INDICATION
     Dosage: 1 TABLET (50 MCG,1 IN 1 D)
     Route: 065
  11. FERINJECT [Suspect]
     Active Substance: FERRIC CARBOXYMALTOSE
     Indication: IRON DEFICIENCY ANAEMIA

REACTIONS (3)
  - Blood phosphorus abnormal [Recovered/Resolved]
  - Fracture [Recovered/Resolved]
  - Osteomalacia [Recovered/Resolved]

NARRATIVE: CASE EVENT DATE: 20151022
